FAERS Safety Report 10170885 (Version 1)
Quarter: 2014Q2

REPORT INFORMATION
  Report Type: Spontaneous
  Country: US (occurrence: None)
  Receive Date: 20140513
  Receipt Date: 20140513
  Transmission Date: 20141212
  Serious: Yes (Other)
  Sender: FDA-Public Use
  Company Number: None

PATIENT
  Age: 85 Year
  Sex: Female
  Weight: 49.9 kg

DRUGS (7)
  1. OXYCODONE [Suspect]
     Indication: BACK PAIN
     Dosage: 15 MG TAB 4,5/DAY BY MOUTH
     Route: 048
  2. NORVASC [Concomitant]
  3. PROTONIX [Concomitant]
  4. PROLIA [Concomitant]
  5. CYMBALTA [Concomitant]
  6. BACK BRACE [Concomitant]
  7. VITAMIN D [Concomitant]

REACTIONS (1)
  - Deafness [None]
